FAERS Safety Report 10482362 (Version 2)
Quarter: 2014Q4

REPORT INFORMATION
  Report Type: Spontaneous
  Country: US (occurrence: US)
  Receive Date: 20140929
  Receipt Date: 20141223
  Transmission Date: 20150528
  Serious: Yes (Hospitalization, Other)
  Sender: FDA-Public Use
  Company Number: US-BAYER-2014-142707

PATIENT
  Age: 20 Year
  Sex: Female
  Weight: 68.27 kg

DRUGS (1)
  1. MIRENA [Suspect]
     Active Substance: LEVONORGESTREL
     Indication: CONTRACEPTION
     Dosage: 20 MCG/24HR, CONT
     Route: 015
     Dates: start: 20110830, end: 20121010

REACTIONS (8)
  - Injury [None]
  - Embedded device [None]
  - Abortion spontaneous [None]
  - Depression [Not Recovered/Not Resolved]
  - Emotional distress [None]
  - Dyspareunia [Not Recovered/Not Resolved]
  - Pain [None]
  - Vaginal haemorrhage [None]

NARRATIVE: CASE EVENT DATE: 2011
